FAERS Safety Report 9767721 (Version 3)
Quarter: 2014Q2

REPORT INFORMATION
  Report Type: Spontaneous
  Country: US (occurrence: US)
  Receive Date: 20131217
  Receipt Date: 20140424
  Transmission Date: 20141212
  Serious: No
  Sender: FDA-Public Use
  Company Number: US-GILEAD-2013-0089854

PATIENT
  Sex: Male

DRUGS (6)
  1. LETAIRIS [Suspect]
     Indication: PULMONARY HYPERTENSION
     Dosage: 10 MG, QD
     Route: 048
     Dates: start: 20120612, end: 201308
  2. LETAIRIS [Suspect]
     Indication: SLEEP APNOEA SYNDROME
  3. LETAIRIS [Suspect]
     Indication: PULMONARY ARTERIAL HYPERTENSION
  4. TYVASO [Concomitant]
  5. WARFARIN SODIUM [Concomitant]
  6. ADCIRCA [Concomitant]

REACTIONS (5)
  - Malaise [Unknown]
  - Swollen tongue [Unknown]
  - Palpitations [Unknown]
  - Flushing [Unknown]
  - Dizziness [Unknown]
